FAERS Safety Report 5943040-3 (Version None)
Quarter: 2008Q4

REPORT INFORMATION
  Report Type: 
  Country: None (occurrence: None)
  Receive Date: 20081106
  Receipt Date: 20081029
  Transmission Date: 20090506
  Serious: Yes (Disabling, Other)
  Sender: FDA-Public Use
  Company Number: ES-ABBOTT-08P-144-0484486-00

PATIENT
  Age: 46 Year
  Sex: Female

DRUGS (3)
  1. SIBUTRAMINE [Suspect]
     Indication: OBESITY
     Dosage: 10 MG DAILY
     Route: 048
     Dates: start: 20050101, end: 20050101
  2. SIBUTRAMINE [Suspect]
     Dosage: 10 MG DAILY
     Route: 048
     Dates: start: 20050101
  3. SIBUTRAMINE [Suspect]
     Dosage: 15 MG DAILY
     Route: 048
     Dates: start: 20080501

REACTIONS (4)
  - CHORIORETINITIS [None]
  - CONJUNCTIVAL HAEMORRHAGE [None]
  - DRUG INEFFECTIVE [None]
  - HYPERTENSION [None]
